FAERS Safety Report 8775922 (Version 1)
Quarter: 2012Q4

REPORT INFORMATION
  Report Type: 
  Country: JP (occurrence: JP)
  Receive Date: 20120910
  Receipt Date: 20120910
  Transmission Date: 20130627
  Serious: Yes (Death, Other)
  Sender: FDA-Public Use
  Company Number: JP-BRISTOL-MYERS SQUIBB COMPANY-16922262

PATIENT
  Sex: Male

DRUGS (1)
  1. VIDEX [Suspect]
     Route: 048

REACTIONS (2)
  - Hepatic failure [Fatal]
  - Portal vein thrombosis [Unknown]
